FAERS Safety Report 10191397 (Version 1)
Quarter: 2014Q2

REPORT INFORMATION
  Report Type: Spontaneous
  Country: US (occurrence: US)
  Receive Date: 20140523
  Receipt Date: 20140523
  Transmission Date: 20141212
  Serious: No
  Sender: FDA-Public Use
  Company Number: US-PFIZER INC-2014136728

PATIENT
  Age: 50 Year
  Sex: Male
  Weight: 96.15 kg

DRUGS (11)
  1. SUTENT [Suspect]
     Indication: GASTROINTESTINAL STROMAL TUMOUR
     Dosage: 50 MG DAILY, FOR 4 WEEKS THEN TAKE 2 WEEKS OFF
     Route: 048
     Dates: start: 20140106
  2. GLEEVEC [Suspect]
     Indication: GASTROINTESTINAL STROMAL TUMOUR
     Dosage: 400 MG, 1X/DAY
     Route: 048
     Dates: start: 20130523, end: 20131023
  3. GLEEVEC [Suspect]
     Dosage: 400 MG, 2X/DAY
     Route: 048
     Dates: start: 20131023
  4. ALPRAZOLAM [Concomitant]
     Dosage: 0.5 MG, 3 TIMES DAILY AS NEEDED
     Route: 048
     Dates: start: 20130515
  5. CLOTRIMAZOL + BETAMETASONA [Concomitant]
     Dosage: BETAMETHASONE 0.05/ CLOTRIMAZOLE 1%, 0.25 INCH, 3 TIMES DAILY
     Route: 061
     Dates: start: 20121116
  6. ENALAPRIL MALEATE [Concomitant]
     Dosage: 10 MG, DAILY
     Route: 048
     Dates: start: 20111030
  7. LOVAZA [Concomitant]
     Dosage: 1 G, UNK
     Route: 048
     Dates: start: 20111028
  8. MEDROL [Concomitant]
     Dosage: 4 MG, AS DIRECTED ON PATIENT INSTRUCTION CARD
     Route: 048
     Dates: start: 20130612
  9. TOPROL XL [Concomitant]
     Dosage: 50 MG, DAILY
     Route: 048
     Dates: start: 20120702
  10. ONDANSETRON HYDROCHLORIDE [Concomitant]
     Indication: NAUSEA
     Dosage: 8 MG, 4 TIMES DAILY AS NEEDED
     Route: 048
     Dates: start: 20131206
  11. VIAGRA [Concomitant]
     Dosage: 100 MG, UNK
     Route: 048
     Dates: start: 20111028

REACTIONS (10)
  - Abdominal pain [Unknown]
  - Fatigue [Unknown]
  - Hyperlipidaemia [Unknown]
  - Hypertension [Unknown]
  - Metabolic disorder [Unknown]
  - Blood glucose abnormal [Unknown]
  - Radiculopathy [Unknown]
  - Anxiety [Unknown]
  - Nausea [Unknown]
  - Rash [Unknown]
